FAERS Safety Report 6309928-9 (Version None)
Quarter: 2009Q3

REPORT INFORMATION
  Report Type: 
  Country: None (occurrence: None)
  Receive Date: 20090814
  Receipt Date: 20090807
  Transmission Date: 20100115
  Serious: Yes (Congenital Anomaly)
  Sender: FDA-Public Use
  Company Number: B0556379A

PATIENT
  Sex: Male

DRUGS (3)
  1. KIVEXA [Suspect]
     Dates: end: 20080401
  2. KALETRA [Suspect]
     Dates: end: 20080401
  3. FUZEON [Suspect]
     Dates: end: 20080401

REACTIONS (5)
  - CONGENITAL SKIN DISORDER [None]
  - DRUG EXPOSURE DURING PREGNANCY [None]
  - MOSAICISM [None]
  - SKIN DEPIGMENTATION [None]
  - VITILIGO [None]
